FAERS Safety Report 6456687-5 (Version None)
Quarter: 2009Q4

REPORT INFORMATION
  Report Type: 
  Country: None (occurrence: None)
  Receive Date: 20091125
  Receipt Date: 20091116
  Transmission Date: 20100525
  Serious: Yes (Hospitalization)
  Sender: FDA-Public Use
  Company Number: KR-ASTRAZENECA-2009SE27538

PATIENT
  Age: 34 Year
  Sex: Male

DRUGS (2)
  1. LIDOCAINE [Suspect]
     Indication: MYOFASCIAL PAIN SYNDROME
     Route: 065
  2. DEXAMETHASONE [Suspect]
     Indication: MYOFASCIAL PAIN SYNDROME
     Route: 065

REACTIONS (1)
  - PARALYSIS [None]
